FAERS Safety Report 8238274-1 (Version None)
Quarter: 2012Q1

REPORT INFORMATION
  Report Type: 
  Country: None (occurrence: None)
  Receive Date: 20120327
  Receipt Date: 20120314
  Transmission Date: 20120608
  Serious: Yes (Other)
  Sender: FDA-Public Use
  Company Number: US-ROCHE-1052383

PATIENT
  Sex: Female

DRUGS (8)
  1. ZOMETA [Suspect]
     Indication: OSTEOPOROSIS
     Dates: start: 20070201, end: 20111001
  2. BONIVA [Suspect]
     Indication: OSTEOPENIA
  3. ZOMETA [Suspect]
     Indication: OSTEOPENIA
  4. RECLAST [Suspect]
     Indication: OSTEOPENIA
  5. BONIVA [Suspect]
     Indication: OSTEOPOROSIS
     Dates: start: 20070201, end: 20111001
  6. FOSAMAX [Suspect]
     Indication: OSTEOPOROSIS
     Dates: start: 20070201, end: 20111001
  7. FOSAMAX [Suspect]
     Indication: OSTEOPENIA
  8. RECLAST [Suspect]
     Indication: OSTEOPOROSIS
     Dates: start: 20070201, end: 20111001

REACTIONS (2)
  - FEMUR FRACTURE [None]
  - EMOTIONAL DISTRESS [None]
